FAERS Safety Report 5350862-9 (Version None)
Quarter: 2007Q2

REPORT INFORMATION
  Report Type: 
  Country: None (occurrence: None)
  Receive Date: 20070608
  Receipt Date: 20070601
  Transmission Date: 20071010
  Serious: Yes (Hospitalization, Other)
  Sender: FDA-Public Use
  Company Number: B0099827A

PATIENT
  Sex: Female
  Weight: 3.2 kg

DRUGS (14)
  1. RETROVIR [Suspect]
     Indication: ANTIVIRAL PROPHYLAXIS
     Route: 048
  2. NEVIRAPINE [Suspect]
     Indication: ANTIVIRAL PROPHYLAXIS
     Dates: start: 19990912, end: 19990912
  3. ZIDOVUDINE [Suspect]
     Indication: ANTIVIRAL PROPHYLAXIS
     Route: 042
  4. ZIDOVUDINE [Suspect]
     Indication: HIV INFECTION
  5. NEVIRAPINE [Suspect]
     Indication: HIV INFECTION
     Route: 048
  6. RITONAVIR [Concomitant]
     Indication: HIV INFECTION
  7. SAQUINAVIR [Concomitant]
     Indication: HIV INFECTION
  8. EFAVIRENZ [Concomitant]
     Indication: HIV INFECTION
  9. DIDANOSINE [Concomitant]
     Indication: HIV INFECTION
  10. STAVUDINE [Concomitant]
     Indication: HIV INFECTION
  11. FERROSTRANE [Concomitant]
     Dosage: 10ML PER DAY
     Route: 048
  12. FLUOREX [Concomitant]
  13. FOLIC ACID [Concomitant]
  14. UVESTEROL [Concomitant]

REACTIONS (21)
  - ABDOMINAL PAIN [None]
  - ANAEMIA [None]
  - BLOOD CREATINE PHOSPHOKINASE INCREASED [None]
  - BLOOD KETONE BODY PRESENT [None]
  - BLOOD LACTIC ACID INCREASED [None]
  - BLOOD PYRUVIC ACID DECREASED [None]
  - FAECES PALE [None]
  - FLATULENCE [None]
  - HEPATOMEGALY [None]
  - HYPERCHOLESTEROLAEMIA [None]
  - HYPERTRIGLYCERIDAEMIA [None]
  - HYPOTONIA [None]
  - MALAISE [None]
  - NEUTROPENIA [None]
  - OBESITY [None]
  - OXYGEN SATURATION DECREASED [None]
  - PLATELET COUNT INCREASED [None]
  - POLYHYDRAMNIOS [None]
  - SUPRAVENTRICULAR TACHYCARDIA [None]
  - TACHYCARDIA FOETAL [None]
  - TALIPES [None]
